FAERS Safety Report 6004388-X (Version None)
Quarter: 2008Q4

REPORT INFORMATION
  Report Type: 
  Country: None (occurrence: None)
  Receive Date: 20081216
  Receipt Date: 20081204
  Transmission Date: 20090506
  Serious: Yes (Other)
  Sender: FDA-Public Use
  Company Number: US-ELI_LILLY_AND_COMPANY-US200812001448

PATIENT
  Age: 50 Year
  Sex: Female

DRUGS (4)
  1. PROZAC [Suspect]
     Indication: HOT FLUSH
     Dosage: 10 MG, DAILY (1/D)
     Route: 065
  2. PROZAC [Suspect]
     Dosage: 20 MG, DAILY (1/D)
     Route: 065
  3. TRAZODONE HCL [Concomitant]
     Dosage: UNK, UNKNOWN
     Route: 065
  4. HYDROCHLOROTHIAZIDE [Concomitant]
     Dosage: UNK, UNKNOWN
     Route: 065

REACTIONS (1)
  - BREAST CANCER [None]
